FAERS Safety Report 25952379 (Version 1)
Quarter: 2025Q4

REPORT INFORMATION
  Report Type: Spontaneous
  Country: US (occurrence: US)
  Receive Date: 20251023
  Receipt Date: 20251023
  Transmission Date: 20260118
  Serious: No
  Sender: BLUEPRINT MEDICINES
  Company Number: US-Blueprint Medicines Corporation-2025-AER-02279

PATIENT
  Age: 55 Year
  Sex: Female

DRUGS (1)
  1. AYVAKIT [Suspect]
     Active Substance: AVAPRITINIB
     Indication: Systemic mastocytosis
     Route: 065
     Dates: start: 20251018

REACTIONS (5)
  - Appetite disorder [Recovering/Resolving]
  - Nausea [Recovering/Resolving]
  - Lacrimation increased [Unknown]
  - Eyelid margin crusting [Unknown]
  - Sleep disorder [Unknown]

NARRATIVE: CASE EVENT DATE: 20251019
